FAERS Safety Report 5170360-5 (Version None)
Quarter: 2006Q4

REPORT INFORMATION
  Report Type: 
  Country: None (occurrence: None)
  Receive Date: 20061204
  Receipt Date: 20061122
  Transmission Date: 20070319
  Serious: Yes (Hospitalization, Disabling)
  Sender: FDA-Public Use
  Company Number: 2006129918

PATIENT
  Age: 9 Year
  Sex: Female
  Weight: 33 kg

DRUGS (9)
  1. SULPERAZON (SULBACTAM, CEFOPERAZONE) [Suspect]
     Indication: PNEUMONIA
     Dosage: 2 GRAM (1 GRAM, 2 IN 1 D), INTRAVENOUS
     Route: 030
     Dates: start: 20061008, end: 20061014
  2. SULPERAZON (SULBACTAM, CEFOPERAZONE) [Suspect]
     Indication: PYREXIA
     Dosage: 2 GRAM (1 GRAM, 2 IN 1 D), INTRAVENOUS
     Route: 030
     Dates: start: 20061008, end: 20061014
  3. UNASYN [Concomitant]
     Indication: PNEUMONIA
     Dosage: 3 GRAM ( 1.5 GRAM, 2 IN 1 D), INTRAVENOUS
     Route: 042
     Dates: start: 20061006, end: 20061008
  4. UNASYN [Concomitant]
     Indication: PYREXIA
     Dosage: 3 GRAM ( 1.5 GRAM, 2 IN 1 D), INTRAVENOUS
     Route: 042
     Dates: start: 20061006, end: 20061008
  5. CARBENIN (PANIPENEM/BETAMIPRON) (BETAMIPROM, PANIPENEM) [Suspect]
     Indication: PNEUMONIA
     Dosage: 1 GRAM (0.5 GRAM, 2 IN 1 D), INTRAVENOUS
     Route: 042
     Dates: start: 20061015, end: 20061022
  6. GASTER (FAMOTIDINE) (FAMOTIDINE) [Suspect]
     Indication: PROPHYLAXIS
     Dosage: 20 MG (20 MG 1 IN D ), INTRAVENOUS
     Route: 042
     Dates: start: 20061007, end: 20061015
  7. ROCEPHIN [Concomitant]
  8. CEFAZOLIN SODIUM [Concomitant]
  9. PANTOL (PANTHENOL) (DEXPANTHENOL) [Concomitant]

REACTIONS (10)
  - ACUTE RESPIRATORY DISTRESS SYNDROME [None]
  - CONDITION AGGRAVATED [None]
  - EOSINOPHIL COUNT INCREASED [None]
  - HYPERSENSITIVITY [None]
  - INFECTION [None]
  - PNEUMONIA ASPIRATION [None]
  - PULMONARY OEDEMA [None]
  - SPUTUM CULTURE POSITIVE [None]
  - STAPHYLOCOCCAL INFECTION [None]
  - THERAPY NON-RESPONDER [None]
